FAERS Safety Report 20414278 (Version 7)
Quarter: 2024Q1

REPORT INFORMATION
  Report Type: Other
  Country: CA (occurrence: None)
  Receive Date: 20220202
  Receipt Date: 20240304
  Transmission Date: 20240409
  Serious: Yes (Other)
  Sender: FDA-Public Use
  Company Number: CA-ROCHE-3014814

PATIENT
  Age: 41 Year
  Sex: Female

DRUGS (3)
  1. OCREVUS [Suspect]
     Active Substance: OCRELIZUMAB
     Indication: Relapsing-remitting multiple sclerosis
     Dosage: 300 MG AT DAY 0 AND 14, THEN 600 MG EVERY 6 MONTHS, SUBSEQUENT DOSE 19/JAN/2022
     Route: 042
     Dates: start: 20200623
  2. PAXLOVID [Suspect]
     Active Substance: NIRMATRELVIR\RITONAVIR
     Indication: Antiviral treatment
     Dosage: 3 TABLETS IN THE MORNING AND EVENING FOR 5 DAYS
     Route: 065
  3. LOSEC [Concomitant]
     Active Substance: OMEPRAZOLE

REACTIONS (10)
  - Oesophageal stenosis [Unknown]
  - Lower respiratory tract infection [Recovering/Resolving]
  - COVID-19 [Recovering/Resolving]
  - Pain in extremity [Unknown]
  - Abdominal discomfort [Recovering/Resolving]
  - Diarrhoea [Recovering/Resolving]
  - Taste disorder [Recovering/Resolving]
  - Fatigue [Recovering/Resolving]
  - Tendon disorder [Unknown]
  - Sinusitis [Recovering/Resolving]

NARRATIVE: CASE EVENT DATE: 20220126
